FAERS Safety Report 13210270 (Version 17)
Quarter: 2018Q4

REPORT INFORMATION
  Report Type: Spontaneous
  Country: US (occurrence: US)
  Receive Date: 20170209
  Receipt Date: 20181008
  Transmission Date: 20190204
  Serious: Yes (Hospitalization)
  Sender: FDA-Public Use
  Company Number: US-ACTELION-A-US2017-149727

PATIENT
  Age: 44 Year
  Sex: Female
  Weight: 86.17 kg

DRUGS (8)
  1. VELETRI [Suspect]
     Active Substance: EPOPROSTENOL
     Indication: PULMONARY ARTERIAL HYPERTENSION
     Dosage: 35 NG/KG, PER MIN
     Route: 042
  2. SILDENAFIL. [Suspect]
     Active Substance: SILDENAFIL
     Indication: PRODUCT USED FOR UNKNOWN INDICATION
     Route: 065
  3. WARFARIN [Concomitant]
     Active Substance: WARFARIN
  4. DILTIAZEM. [Concomitant]
     Active Substance: DILTIAZEM
  5. VELETRI [Suspect]
     Active Substance: EPOPROSTENOL
     Dosage: UNK
     Route: 042
  6. ADEMPAS [Suspect]
     Active Substance: RIOCIGUAT
     Indication: PRODUCT USED FOR UNKNOWN INDICATION
     Route: 065
  7. OPSUMIT [Suspect]
     Active Substance: MACITENTAN
     Indication: PULMONARY ARTERIAL HYPERTENSION
     Dosage: UNK
     Route: 048
     Dates: start: 20160413
  8. XARELTO [Concomitant]
     Active Substance: RIVAROXABAN

REACTIONS (21)
  - Catheter site infection [Unknown]
  - Catheter management [Unknown]
  - Malaise [Unknown]
  - Weight decreased [Unknown]
  - Treatment noncompliance [Unknown]
  - Catheter site discharge [Unknown]
  - Pulmonary hypertension [Unknown]
  - Rash generalised [Not Recovered/Not Resolved]
  - Abdominal pain upper [Unknown]
  - Multiple allergies [Unknown]
  - Diarrhoea [Unknown]
  - Device dislocation [Unknown]
  - Arthralgia [Unknown]
  - Headache [Recovered/Resolved]
  - Abdominal discomfort [Unknown]
  - Catheter site swelling [Unknown]
  - Spinal operation [Unknown]
  - Nasopharyngitis [Unknown]
  - Catheter site mass [Unknown]
  - Vascular device infection [Unknown]
  - Dyspepsia [Unknown]

NARRATIVE: CASE EVENT DATE: 20170130
